FAERS Safety Report 20134372 (Version 1)
Quarter: 2021Q4

REPORT INFORMATION
  Report Type: Report from Study
  Country: CN (occurrence: CN)
  Receive Date: 20211201
  Receipt Date: 20211201
  Transmission Date: 20220303
  Serious: Yes (Hospitalization, Other)
  Sender: FDA-Public Use
  Company Number: CN-NOVARTISPH-NVSC2021CN272640

PATIENT
  Age: 68 Year
  Sex: Male
  Weight: 60 kg

DRUGS (1)
  1. ZYKADIA [Suspect]
     Active Substance: CERITINIB
     Indication: Lung adenocarcinoma
     Dosage: 450 MG, QD
     Route: 048
     Dates: start: 20200917

REACTIONS (4)
  - Headache [Unknown]
  - Mental disorder [Not Recovered/Not Resolved]
  - Epilepsy [Not Recovered/Not Resolved]
  - Brain injury [Unknown]

NARRATIVE: CASE EVENT DATE: 20211027
